FAERS Safety Report 13487511 (Version 1)
Quarter: 2017Q2

REPORT INFORMATION
  Report Type: Spontaneous
  Country: US (occurrence: US)
  Receive Date: 20170426
  Receipt Date: 20170426
  Transmission Date: 20170830
  Serious: No
  Sender: FDA-Public Use
  Company Number: US-ALKERMES INC.-ALK-2016-003104

PATIENT
  Age: 3 Decade
  Sex: Female
  Weight: 69.39 kg

DRUGS (1)
  1. VIVITROL [Suspect]
     Active Substance: NALTREXONE
     Indication: ALCOHOLISM
     Dosage: 380 MG, QMO
     Route: 030
     Dates: start: 20160917

REACTIONS (6)
  - Ocular hyperaemia [Recovered/Resolved]
  - Injection site swelling [Unknown]
  - Injection site pain [Unknown]
  - Injection site induration [Unknown]
  - Injection site reaction [Unknown]
  - Asthenia [Unknown]

NARRATIVE: CASE EVENT DATE: 201609
